FAERS Safety Report 4452650-4 (Version None)
Quarter: 2004Q3

REPORT INFORMATION
  Report Type: 
  Country: None (occurrence: None)
  Receive Date: 20040813
  Receipt Date: 20040614
  Transmission Date: 20050211
  Serious: No
  Sender: FDA-Public Use
  Company Number: S04-USA-03783-01

PATIENT
  Age: 81 Year
  Sex: Female

DRUGS (17)
  1. NAMENDA [Suspect]
     Indication: DEMENTIA ALZHEIMER'S TYPE
     Dosage: 5 MG QD PO
     Route: 048
     Dates: start: 20040201
  2. NAMENDA [Suspect]
     Indication: DEMENTIA ALZHEIMER'S TYPE
     Dosage: 10 MG QD PO
     Route: 048
  3. NAMENDA [Suspect]
     Indication: DEMENTIA ALZHEIMER'S TYPE
     Dosage: 15 MG QD PO
     Route: 048
  4. NAMENDA [Suspect]
     Indication: DEMENTIA ALZHEIMER'S TYPE
     Dosage: 20 MG QD PO
     Route: 048
  5. ARICEPT [Concomitant]
  6. POTASSIUM [Concomitant]
  7. SYNTHROID [Concomitant]
  8. PROTONIX [Concomitant]
  9. ALTACE [Concomitant]
  10. NORVASC [Concomitant]
  11. SPIRONOLACTONE [Concomitant]
  12. TRAZODONE HCL [Concomitant]
  13. DEPAKOTE [Concomitant]
  14. ZOCOR [Concomitant]
  15. LOMOTIL [Concomitant]
  16. ABILIFY [Concomitant]
  17. BUSPAR [Concomitant]

REACTIONS (3)
  - AGITATION [None]
  - ANXIETY [None]
  - URINARY TRACT INFECTION [None]
